FAERS Safety Report 8070753-2 (Version None)
Quarter: 2012Q1

REPORT INFORMATION
  Report Type: 
  Country: None (occurrence: None)
  Receive Date: 20120125
  Receipt Date: 20120120
  Transmission Date: 20120608
  Serious: Yes (Other)
  Sender: FDA-Public Use
  Company Number: US-JNJFOC-20120108707

PATIENT
  Sex: Female
  Weight: 74.84 kg

DRUGS (3)
  1. RISPERDAL CONSTA [Suspect]
     Indication: SCHIZOPHRENIA
     Route: 030
     Dates: start: 20111218, end: 20111230
  2. RISPERDAL [Suspect]
     Indication: SCHIZOPHRENIA
     Route: 048
     Dates: start: 20111218, end: 20120119
  3. INVEGA SUSTENNA [Suspect]
     Indication: SCHIZOPHRENIA
     Route: 030
     Dates: start: 20120118

REACTIONS (15)
  - RESTLESSNESS [None]
  - SEDATION [None]
  - HYPERHIDROSIS [None]
  - OVERDOSE [None]
  - INCONTINENCE [None]
  - SPEECH DISORDER [None]
  - DYSKINESIA [None]
  - SKIN ODOUR ABNORMAL [None]
  - GAIT DISTURBANCE [None]
  - INSOMNIA [None]
  - DRUG INEFFECTIVE [None]
  - MYALGIA [None]
  - AGITATION [None]
  - CONSTIPATION [None]
  - MUSCULOSKELETAL STIFFNESS [None]
